FAERS Safety Report 6096262-8 (Version None)
Quarter: 2009Q1

REPORT INFORMATION
  Report Type: 
  Country: None (occurrence: None)
  Receive Date: 20090227
  Receipt Date: 20081124
  Transmission Date: 20090719
  Serious: No
  Sender: FDA-Public Use
  Company Number: A0753302A

PATIENT
  Age: 27 Year
  Sex: Female

DRUGS (4)
  1. LAMOTRIGINE [Suspect]
     Indication: BIPOLAR II DISORDER
     Dosage: 200TAB AT NIGHT
     Route: 048
     Dates: start: 20080601
  2. TRIVORA-21 [Suspect]
     Indication: DRUG USE FOR UNKNOWN INDICATION
     Route: 065
  3. ZYPREXA [Concomitant]
  4. KLONOPIN [Concomitant]

REACTIONS (2)
  - ACNE [None]
  - DRUG INTERACTION [None]
